FAERS Safety Report 9390234 (Version 3)
Quarter: 2013Q3

REPORT INFORMATION
  Report Type: Spontaneous
  Country: US (occurrence: US)
  Receive Date: 20130708
  Receipt Date: 20130816
  Transmission Date: 20140515
  Serious: Yes (Other)
  Sender: FDA-Public Use
  Company Number: US-009507513-1307USA000674

PATIENT
  Age: 24 Year
  Sex: Female
  Weight: 121.1 kg

DRUGS (2)
  1. IMPLANON [Suspect]
     Indication: CONTRACEPTION
     Dosage: 1 DF, UNK
     Dates: start: 20111223, end: 20130726
  2. NEXPLANON [Concomitant]

REACTIONS (9)
  - Wrist surgery [Recovered/Resolved]
  - Device breakage [Recovered/Resolved]
  - Haemorrhage [Unknown]
  - Tourniquet application [Unknown]
  - Adverse event [Unknown]
  - Arthralgia [Unknown]
  - Wound treatment [Unknown]
  - Musculoskeletal discomfort [Unknown]
  - Tenosynovitis stenosans [Unknown]
